FAERS Safety Report 6837901-0 (Version None)
Quarter: 2010Q3

REPORT INFORMATION
  Report Type: 
  Country: None (occurrence: None)
  Receive Date: 20100713
  Receipt Date: 20070527
  Transmission Date: 20110219
  Serious: No
  Sender: FDA-Public Use
  Company Number: US-PFIZER INC-2007043412

PATIENT
  Sex: Female

DRUGS (4)
  1. CHANTIX [Suspect]
     Indication: SMOKING CESSATION THERAPY
     Route: 048
     Dates: start: 20070514
  2. LISINOPRIL [Concomitant]
     Indication: HYPERTENSION
  3. METHOTREXATE [Concomitant]
     Route: 048
  4. LIPITOR [Concomitant]

REACTIONS (2)
  - NAUSEA [None]
  - VOMITING [None]
